FAERS Safety Report 8198272-3 (Version None)
Quarter: 2012Q1

REPORT INFORMATION
  Report Type: 
  Country: None (occurrence: None)
  Receive Date: 20120309
  Receipt Date: 20120302
  Transmission Date: 20120608
  Serious: Yes (Other)
  Sender: FDA-Public Use
  Company Number: PHHY2012BR018887

PATIENT
  Age: 64 Year
  Sex: Female

DRUGS (1)
  1. FORADIL [Suspect]
     Indication: BRONCHITIS
     Dosage: 12 UG, 1 INHALATION A DAY

REACTIONS (3)
  - WEIGHT INCREASED [None]
  - BLOOD CHOLESTEROL INCREASED [None]
  - TACHYCARDIA [None]
